FAERS Safety Report 12895187 (Version 2)
Quarter: 2016Q4

REPORT INFORMATION
  Report Type: Spontaneous
  Country: US (occurrence: US)
  Receive Date: 20161029
  Receipt Date: 20161220
  Transmission Date: 20170207
  Serious: Yes (Hospitalization, Other)
  Sender: FDA-Public Use
  Company Number: US-BRISTOL-MYERS SQUIBB COMPANY-BMS-2016-089246

PATIENT
  Age: 63 Year
  Sex: Male

DRUGS (2)
  1. OPDIVO [Suspect]
     Active Substance: NIVOLUMAB
     Indication: METASTATIC MALIGNANT MELANOMA
     Dosage: UNK
     Route: 065
  2. YERVOY [Suspect]
     Active Substance: IPILIMUMAB
     Indication: METASTATIC MALIGNANT MELANOMA
     Dosage: UNK
     Route: 065

REACTIONS (8)
  - Antiphospholipid syndrome [Unknown]
  - Hypopituitarism [Unknown]
  - Cancer surgery [Unknown]
  - Thrombotic microangiopathy [Unknown]
  - Transaminases increased [Unknown]
  - Metastases to bladder [Unknown]
  - Skin discolouration [Unknown]
  - Cold sweat [Unknown]
